FAERS Safety Report 5126928-5 (Version None)
Quarter: 2006Q4

REPORT INFORMATION
  Report Type: 
  Country: None (occurrence: None)
  Receive Date: 20061010
  Receipt Date: 20060928
  Transmission Date: 20070319
  Serious: Yes (Other)
  Sender: FDA-Public Use
  Company Number: 2006117872

PATIENT
  Sex: Male

DRUGS (2)
  1. GEODON [Suspect]
     Dosage: SEE IMAGE
     Route: 030
  2. . [Concomitant]

REACTIONS (6)
  - CHEST PAIN [None]
  - COLD SWEAT [None]
  - FEELING HOT [None]
  - HYPERHIDROSIS [None]
  - HYPOAESTHESIA [None]
  - PALPITATIONS [None]
